FAERS Safety Report 12275876 (Version 1)
Quarter: 2016Q2

REPORT INFORMATION
  Report Type: Spontaneous
  Country: US (occurrence: US)
  Receive Date: 20160418
  Receipt Date: 20160418
  Transmission Date: 20160815
  Serious: Yes (Hospitalization)
  Sender: FDA-Public Use
  Company Number: US-BEH-2016061182

PATIENT
  Sex: Male
  Weight: 69 kg

DRUGS (23)
  1. CELLCEPT [Concomitant]
     Active Substance: MYCOPHENOLATE MOFETIL\MYCOPHENOLATE MOFETIL HYDROCHLORIDE
  2. BACTRIM DS [Concomitant]
     Active Substance: SULFAMETHOXAZOLE\TRIMETHOPRIM
  3. MULTIVITAMINS [Concomitant]
     Active Substance: VITAMINS
  4. WARFARIN [Concomitant]
     Active Substance: WARFARIN
  5. HIZENTRA [Suspect]
     Active Substance: HUMAN IMMUNOGLOBULIN G
     Indication: IMMUNODEFICIENCY COMMON VARIABLE
     Route: 058
     Dates: start: 20150917
  6. EFFEXOR XR [Concomitant]
     Active Substance: VENLAFAXINE HYDROCHLORIDE
  7. PROTONIX [Concomitant]
     Active Substance: PANTOPRAZOLE SODIUM
  8. PREDNISONE. [Concomitant]
     Active Substance: PREDNISONE
  9. VFEND [Concomitant]
     Active Substance: VORICONAZOLE
  10. ZITHROMAX [Concomitant]
     Active Substance: AZITHROMYCIN DIHYDRATE
  11. FERROUS SULFATE. [Concomitant]
     Active Substance: FERROUS SULFATE
  12. METOPROLOL. [Concomitant]
     Active Substance: METOPROLOL
  13. GABAPENTIN. [Concomitant]
     Active Substance: GABAPENTIN
  14. GLUCOSAMINE [Concomitant]
     Active Substance: GLUCOSAMINE
  15. TACROLIMUS. [Concomitant]
     Active Substance: TACROLIMUS
  16. LASIX [Concomitant]
     Active Substance: FUROSEMIDE
  17. COMBIVENT [Concomitant]
     Active Substance: ALBUTEROL SULFATE\IPRATROPIUM BROMIDE
  18. PRAVASTATIN [Concomitant]
     Active Substance: PRAVASTATIN\PRAVASTATIN SODIUM
  19. ACYCLOVIR. [Concomitant]
     Active Substance: ACYCLOVIR
  20. VITAMIN C [Concomitant]
     Active Substance: ASCORBIC ACID
  21. CALCIUM + D3 [Concomitant]
     Active Substance: CALCIUM\CHOLECALCIFEROL
  22. ALENDRONATE [Concomitant]
     Active Substance: ALENDRONATE SODIUM
  23. RISPERDAL [Concomitant]
     Active Substance: RISPERIDONE

REACTIONS (2)
  - Lung transplant [Unknown]
  - Pneumonia viral [Unknown]
